FAERS Safety Report 5637198-3 (Version None)
Quarter: 2008Q1

REPORT INFORMATION
  Report Type: 
  Country: None (occurrence: None)
  Receive Date: 20080225
  Receipt Date: 20080215
  Transmission Date: 20080703
  Serious: Yes (Hospitalization)
  Sender: FDA-Public Use
  Company Number: DE-ABBOTT-08P-062-0438848-00

PATIENT
  Sex: Female

DRUGS (1)
  1. ERGENYL CHRONO TABLETS [Suspect]
     Indication: EPILEPSY
     Route: 048

REACTIONS (2)
  - DISTURBANCE IN ATTENTION [None]
  - ENCEPHALOPATHY [None]
